FAERS Safety Report 9757283 (Version 1)
Quarter: 2013Q4

REPORT INFORMATION
  Report Type: Spontaneous
  Country: FR (occurrence: FR)
  Receive Date: 20131213
  Receipt Date: 20131213
  Transmission Date: 20140711
  Serious: Yes (Hospitalization)
  Sender: FDA-Public Use
  Company Number: FR-ROCHE-1319090

PATIENT
  Age: 101 Year
  Sex: Female

DRUGS (6)
  1. ROCEPHINE [Suspect]
     Indication: BRONCHITIS
     Route: 042
     Dates: start: 20131014, end: 20131025
  2. COUMADINE [Suspect]
     Indication: PRODUCT USED FOR UNKNOWN INDICATION
     Route: 048
     Dates: end: 20131024
  3. OFLOCET [Suspect]
     Indication: BRONCHITIS
     Route: 065
     Dates: start: 20131014, end: 20131025
  4. SERESTA [Concomitant]
     Route: 065
  5. ESIDREX [Concomitant]
     Route: 065
  6. ZOPICLONE [Concomitant]
     Route: 065

REACTIONS (2)
  - Haematoma [Recovered/Resolved]
  - Anaemia [Recovered/Resolved]
